FAERS Safety Report 12783210 (Version 1)
Quarter: 2016Q3

REPORT INFORMATION
  Report Type: Spontaneous
  Country: US (occurrence: US)
  Receive Date: 20160927
  Receipt Date: 20160927
  Transmission Date: 20161109
  Serious: Yes (Other)
  Sender: FDA-Public Use
  Company Number: US-BEH-2010024459

PATIENT
  Age: 20 Year
  Sex: Female

DRUGS (1)
  1. INTRAVENOUS IMMUNOGLOBULIN [Suspect]
     Active Substance: HUMAN IMMUNOGLOBULIN G
     Indication: MYASTHENIA GRAVIS
     Dosage: 0.4 G/KG X TWO DOSES
     Route: 042

REACTIONS (2)
  - Transverse sinus thrombosis [Recovered/Resolved]
  - Headache [Recovered/Resolved]
